FAERS Safety Report 14168882 (Version 1)
Quarter: 2017Q4

REPORT INFORMATION
  Report Type: Spontaneous
  Country: IN (occurrence: IN)
  Receive Date: 20171107
  Receipt Date: 20171107
  Transmission Date: 20180321
  Serious: Yes (Other)
  Sender: FDA-Public Use
  Company Number: IN-MYLANLABS-2017M1069286

PATIENT
  Age: 21 Year
  Sex: Male

DRUGS (4)
  1. AMPHOTERICIN B. [Concomitant]
     Active Substance: AMPHOTERICIN B
     Indication: CANDIDA ENDOPHTHALMITIS
     Dosage: 50 MICROG/0.01ML; REPEATED TWO MORE TIMES EVERY 48 HOURS
     Route: 047
  2. CASPOFUNGIN [Concomitant]
     Active Substance: CASPOFUNGIN
     Indication: CANDIDA ENDOPHTHALMITIS
     Route: 042
  3. AMPHOTERICIN B. [Suspect]
     Active Substance: AMPHOTERICIN B
     Indication: CANDIDA ENDOPHTHALMITIS
     Dosage: 300 MG
     Route: 042
  4. CASPOFUNGIN [Suspect]
     Active Substance: CASPOFUNGIN
     Indication: CANDIDA ENDOPHTHALMITIS
     Dosage: 50 MICROG/0.1 ML; INTRAVITREAL
     Route: 047

REACTIONS (4)
  - Hypokalaemia [Unknown]
  - Nephropathy toxic [Unknown]
  - Renal impairment [Unknown]
  - Off label use [Unknown]
